FAERS Safety Report 10018733 (Version 1)
Quarter: 2014Q1

REPORT INFORMATION
  Report Type: Spontaneous
  Country: US (occurrence: None)
  Receive Date: 20140314
  Receipt Date: 20140314
  Transmission Date: 20141002
  Serious: Yes (Congenital Anomaly)
  Sender: FDA-Public Use
  Company Number: None

PATIENT
  Age: 31 Year
  Sex: Female
  Weight: 81.65 kg

DRUGS (1)
  1. CITALOPRAM [Suspect]
     Dosage: FIRST TEN WEEKS OF PREGNANCY
     Route: 048

REACTIONS (2)
  - Exposure during pregnancy [None]
  - Maternal drugs affecting foetus [None]
